FAERS Safety Report 8178793-X (Version None)
Quarter: 2012Q1

REPORT INFORMATION
  Report Type: 
  Country: None (occurrence: None)
  Receive Date: 20120301
  Receipt Date: 20120222
  Transmission Date: 20120608
  Serious: Yes (Congenital Anomaly)
  Sender: FDA-Public Use
  Company Number: GB-TEVA-324642ISR

PATIENT
  Age: 9 Month

DRUGS (2)
  1. VALPROIC ACID [Suspect]
     Indication: FOETAL EXPOSURE DURING PREGNANCY
     Route: 064
  2. ZONEGRAN [Suspect]
     Indication: FOETAL EXPOSURE DURING PREGNANCY
     Dosage: UNKNOWN
     Route: 064

REACTIONS (2)
  - FOETAL ANTICONVULSANT SYNDROME [None]
  - MATERNAL EXPOSURE DURING PREGNANCY [None]
